FAERS Safety Report 8291623-0 (Version None)
Quarter: 2012Q2

REPORT INFORMATION
  Report Type: 
  Country: None (occurrence: None)
  Receive Date: 20120413
  Receipt Date: 20120331
  Transmission Date: 20120825
  Serious: Yes (Other)
  Sender: FDA-Public Use
  Company Number: 2012AP000976

PATIENT
  Age: 53 Year
  Sex: Male

DRUGS (4)
  1. CITALOPRAM HYDROBROMIDE [Suspect]
     Indication: ANXIETY
     Dosage: 20 MG
  2. LORAZEPAM [Concomitant]
  3. RIBAVIRIN [Suspect]
     Indication: HEPATITIS C
     Dosage: 1200 MG
  4. INTERFERON [Suspect]
     Indication: HEPATITIS C
     Dosage: 180 UG

REACTIONS (10)
  - DELUSIONAL DISORDER, EROTOMANIC TYPE [None]
  - CONDITION AGGRAVATED [None]
  - ANGER [None]
  - IRRITABILITY [None]
  - NERVOUSNESS [None]
  - NEPHROLITHIASIS [None]
  - ANXIETY [None]
  - INSOMNIA [None]
  - CRIME [None]
  - DISINHIBITION [None]
